FAERS Safety Report 8057446-2 (Version None)
Quarter: 2012Q1

REPORT INFORMATION
  Report Type: 
  Country: None (occurrence: None)
  Receive Date: 20120119
  Receipt Date: 20120116
  Transmission Date: 20120608
  Serious: Yes (Death, Other)
  Sender: FDA-Public Use
  Company Number: GB-ROCHE-1013923

PATIENT
  Sex: Male

DRUGS (3)
  1. LUCENTIS [Suspect]
     Indication: CHOROIDAL NEOVASCULARISATION
     Route: 050
     Dates: start: 20090121
  2. LOPERAMIDE [Concomitant]
  3. DIPYRIDAMOLE [Concomitant]

REACTIONS (4)
  - DEATH [None]
  - GLAUCOMA [None]
  - ANAEMIA [None]
  - HYPERTENSION [None]
